FAERS Safety Report 13433688 (Version 17)
Quarter: 2018Q4

REPORT INFORMATION
  Report Type: Spontaneous
  Country: GB (occurrence: GB)
  Receive Date: 20170412
  Receipt Date: 20181221
  Transmission Date: 20190204
  Serious: Yes (Other)
  Sender: FDA-Public Use
  Company Number: GB-SA-2017SA039360

PATIENT
  Age: 67 Year
  Sex: Female

DRUGS (23)
  1. FABRAZYME [Suspect]
     Active Substance: AGALSIDASE BETA
     Dosage: 50 MG,QD
     Route: 041
  2. CLOPIDOGREL ZENTIVA [Suspect]
     Active Substance: CLOPIDOGREL BISULFATE
     Dosage: 75 MG DAILY
     Route: 048
  3. FABRAZYME [Suspect]
     Active Substance: AGALSIDASE BETA
     Dosage: UNK UNK,UNK
     Route: 041
     Dates: start: 20171129
  4. LANSOPRAZOLE. [Suspect]
     Active Substance: LANSOPRAZOLE
     Dosage: 30 MG DAILY
     Route: 048
  5. COLECALCIFEROL [Suspect]
     Active Substance: CHOLECALCIFEROL
     Dosage: 800 UNK, 1DAY,UNK
  6. FABRAZYME [Suspect]
     Active Substance: AGALSIDASE BETA
     Dosage: UNK UNK,UNK
     Route: 041
     Dates: start: 20170404
  7. SALBUTAMOL SULFATE [Suspect]
     Active Substance: ALBUTEROL SULFATE
     Dosage: 2 UNK
     Route: 055
  8. FABRAZYME [Suspect]
     Active Substance: AGALSIDASE BETA
     Dosage: UNK UNK,UNK
     Route: 041
     Dates: start: 20170420
  9. FABRAZYME [Suspect]
     Active Substance: AGALSIDASE BETA
     Dosage: 50 MG,QD
     Route: 041
  10. FABRAZYME [Suspect]
     Active Substance: AGALSIDASE BETA
     Dosage: UNK UNK,UNK
     Route: 041
     Dates: start: 20171213
  11. CITALOPRAM HYDROCHLORIDE [Suspect]
     Active Substance: CITALOPRAM HYDROCHLORIDE
     Dosage: 10 MG DAILY
     Route: 048
  12. CODEINE [Suspect]
     Active Substance: CODEINE
     Dosage: 4 DF, QD (4X/DAY (QID))
     Route: 048
  13. NEBIVOLOL. [Suspect]
     Active Substance: NEBIVOLOL
     Indication: BLOOD PRESSURE MEASUREMENT
     Dosage: 2.5 MG, (1 DAY)
     Route: 048
  14. PERINDOPRIL [Suspect]
     Active Substance: PERINDOPRIL
     Dosage: 4 MG, (1 DAY)
     Route: 048
  15. COLECALCIFEROL [Suspect]
     Active Substance: CHOLECALCIFEROL
     Dosage: 800 IU, QD
     Route: 048
  16. FABRAZYME [Suspect]
     Active Substance: AGALSIDASE BETA
     Dosage: 50 MG,QOW
     Route: 041
     Dates: start: 20170206
  17. FABRAZYME [Suspect]
     Active Substance: AGALSIDASE BETA
     Dosage: UNK UNK,UNK
     Route: 041
     Dates: start: 20170220
  18. SALBUTAMOL SULFATE [Suspect]
     Active Substance: ALBUTEROL SULFATE
     Indication: COUGH
     Dosage: 2 DF, UNKFREQUENCY: EVERYROUTE: RESPIRATORY (INHALATION) DOSE:2 PUFF(S)
     Route: 055
  19. ACETYLSALICYLIC ACID [Suspect]
     Active Substance: ASPIRIN
     Dosage: 75 MG, (1 DAY)
     Route: 065
  20. AMIODARONE HYDROCHLORIDE. [Suspect]
     Active Substance: AMIODARONE HYDROCHLORIDE
     Dosage: 200 MG DAILY
     Route: 065
  21. PREGABALIN. [Suspect]
     Active Substance: PREGABALIN
     Dosage: 75 MG, 2X/DAY
     Route: 048
  22. FABRAZYME [Suspect]
     Active Substance: AGALSIDASE BETA
     Dosage: UNK UNK,UNK
     Route: 041
     Dates: start: 20170320
  23. CODEINE PHOSPHATE/PARACETAMOL [Suspect]
     Active Substance: ACETAMINOPHEN\CODEINE PHOSPHATE
     Dosage: 30/500 MGS, 4X/DAY (QID)
     Route: 048

REACTIONS (3)
  - Lower respiratory tract infection [Unknown]
  - Cough [Recovered/Resolved]
  - Wheezing [Unknown]
